FAERS Safety Report 4815642-9 (Version None)
Quarter: 2005Q4

REPORT INFORMATION
  Report Type: 
  Country: None (occurrence: None)
  Receive Date: 20051026
  Receipt Date: 20051014
  Transmission Date: 20060501
  Serious: Yes (Disabling, Other)
  Sender: FDA-Public Use
  Company Number: 2005143318

PATIENT
  Sex: Female

DRUGS (17)
  1. NORVASC [Suspect]
     Indication: BLOOD PRESSURE
     Dosage: 10 MG (5 MG, BID INTERVAL: EVERY DAY)
     Dates: start: 20030201
  2. ACCUPRIL [Suspect]
     Indication: HYPERTENSION
  3. LASIX [Suspect]
     Indication: HYPERTENSION
  4. LOTENSIN [Concomitant]
  5. TOPROL (METOPROLOL) [Concomitant]
  6. CATAPRES [Concomitant]
  7. ZAROXOLYN [Concomitant]
  8. NEXIUM [Concomitant]
  9. GLUCOTROL [Concomitant]
  10. ESTRACE [Concomitant]
  11. SYNTHROID [Concomitant]
  12. PROZAC [Concomitant]
  13. XANAX [Concomitant]
  14. TYLENOL [Concomitant]
  15. VITAMIN E [Concomitant]
  16. SEROQUEL [Concomitant]
  17. DURAGESIC-100 [Concomitant]

REACTIONS (4)
  - FLUID RETENTION [None]
  - MACULAR DEGENERATION [None]
  - NAUSEA [None]
  - RETINAL DETACHMENT [None]
